FAERS Safety Report 22160537 (Version 1)
Quarter: 2023Q1

REPORT INFORMATION
  Report Type: Spontaneous
  Country: RU (occurrence: None)
  Receive Date: 20230331
  Receipt Date: 20230331
  Transmission Date: 20230418
  Serious: Yes (Hospitalization, Other)
  Sender: FDA-Public Use
  Company Number: RU-ROCHE-3320814

PATIENT
  Age: 40 Year
  Sex: Female

DRUGS (10)
  1. GAZYVA [Suspect]
     Active Substance: OBINUTUZUMAB
     Indication: Follicular lymphoma
     Route: 042
     Dates: start: 20221021
  2. RITUXIMAB [Suspect]
     Active Substance: RITUXIMAB
     Indication: Follicular lymphoma
     Dosage: DAY 1
     Route: 041
  3. CYCLOPHOSPHAMIDE [Suspect]
     Active Substance: CYCLOPHOSPHAMIDE
     Indication: Follicular lymphoma
     Route: 034
     Dates: start: 20220915, end: 20220920
  4. DOXORUBICIN [Suspect]
     Active Substance: DOXORUBICIN
     Indication: Follicular lymphoma
     Dosage: DAY 2
     Route: 041
     Dates: start: 20220915, end: 20220920
  5. VINCRISTINE [Suspect]
     Active Substance: VINCRISTINE
     Indication: Follicular lymphoma
     Dosage: DAY 2
     Route: 042
  6. PREDNISONE [Suspect]
     Active Substance: PREDNISONE
     Indication: Follicular lymphoma
     Dosage: DAY 2 TO 6
     Route: 048
     Dates: start: 20220915, end: 20220920
  7. BENDAMUSTINE [Suspect]
     Active Substance: BENDAMUSTINE
     Indication: Follicular lymphoma
     Route: 042
     Dates: start: 20221021
  8. OMEPRAZOLE [Concomitant]
     Active Substance: OMEPRAZOLE
  9. ALLOPURINOL [Concomitant]
     Active Substance: ALLOPURINOL
  10. CORAXAN [IVABRADINE HYDROCHLORIDE] [Concomitant]

REACTIONS (18)
  - Follicular lymphoma [Unknown]
  - COVID-19 pneumonia [Unknown]
  - Hydrothorax [Unknown]
  - Agranulocytosis [Unknown]
  - Thrombocytopenia [Unknown]
  - Deep vein thrombosis [Unknown]
  - Productive cough [Unknown]
  - Rhinorrhoea [Unknown]
  - Asthenia [Unknown]
  - Pyrexia [Unknown]
  - Lymphadenopathy [Unknown]
  - Nodule [Unknown]
  - Splenomegaly [Unknown]
  - Pleural effusion [Unknown]
  - Anaemia [Unknown]
  - Dyspnoea exertional [Unknown]
  - COVID-19 [Unknown]
  - Drug ineffective [Unknown]

NARRATIVE: CASE EVENT DATE: 20220925
